FAERS Safety Report 20718416 (Version 2)
Quarter: 2022Q2

REPORT INFORMATION
  Report Type: Spontaneous
  Country: PK (occurrence: PK)
  Receive Date: 20220418
  Receipt Date: 20220427
  Transmission Date: 20220721
  Serious: Yes (Other)
  Sender: FDA-Public Use
  Company Number: PK-PFIZER INC-202200543599

PATIENT
  Age: 53 Year
  Sex: Male

DRUGS (8)
  1. ENBREL [Suspect]
     Active Substance: ETANERCEPT
     Indication: Product used for unknown indication
     Dosage: 50 MG, WEEKLY
     Route: 058
     Dates: start: 20211010
  2. NUBEROL [Concomitant]
     Dosage: UNK, 0+0+1+0, AFTER MEAL
  3. NEXIUM [Concomitant]
     Active Substance: ESOMEPRAZOLE MAGNESIUM
     Dosage: 1 DOSAGE FORM, QD (BEFORE MEAL)
  4. PANADOL [Concomitant]
     Active Substance: ACETAMINOPHEN
     Dosage: 2 DOSAGE FORM, AS NECESSARY ( ONCE A DAY, AFTER MEAL)
  5. LACOLEP [Concomitant]
     Dosage: UNK, 0+0+1+0
  6. METHYLCOBALAMIN [Concomitant]
     Active Substance: METHYLCOBALAMIN
     Dosage: UNK, 0+0+1+0
  7. FOLIC ACID [Concomitant]
     Active Substance: FOLIC ACID
     Dosage: 1 DF, 2X/WEEK MON, TUE
  8. SUNNY D [Concomitant]
     Dosage: 1 DF, MONTHLY (ONCE A MONTH

REACTIONS (5)
  - Sacroiliitis [Recovering/Resolving]
  - Pain in extremity [Recovering/Resolving]
  - Hypokinesia [Recovering/Resolving]
  - Intermittent claudication [Recovering/Resolving]
  - Pulse abnormal [Recovering/Resolving]
